FAERS Safety Report 5793132-7 (Version None)
Quarter: 2008Q2

REPORT INFORMATION
  Report Type: 
  Country: None (occurrence: None)
  Receive Date: 20080627
  Receipt Date: 20080523
  Transmission Date: 20081010
  Serious: No
  Sender: FDA-Public Use
  Company Number: A0721611A

PATIENT
  Age: 92 Year
  Sex: Female

DRUGS (7)
  1. FLOVENT [Suspect]
     Indication: ASTHMA
     Dosage: 2PUFF TWICE PER DAY
     Route: 055
     Dates: start: 20051104
  2. SINGULAIR [Concomitant]
  3. ATENOLOL [Concomitant]
  4. PRINZIDE [Concomitant]
  5. PREDNISONE [Concomitant]
  6. CLARITIN [Concomitant]
  7. ALBUTEROL [Concomitant]

REACTIONS (2)
  - DRUG INEFFECTIVE [None]
  - PHARMACEUTICAL PRODUCT COMPLAINT [None]
